FAERS Safety Report 5325732-2 (Version None)
Quarter: 2007Q2

REPORT INFORMATION
  Report Type: 
  Country: None (occurrence: None)
  Receive Date: 20070515
  Receipt Date: 20070510
  Transmission Date: 20071010
  Serious: Yes (Life-Threatening, Hospitalization, Disabling, Other)
  Sender: FDA-Public Use
  Company Number: PL-MERCK-0610POL00015

PATIENT
  Age: 65 Year
  Sex: Female
  Weight: 86 kg

DRUGS (26)
  1. SINGULAIR [Suspect]
     Indication: RHINITIS ALLERGIC
     Route: 048
     Dates: start: 20041101, end: 20060601
  2. SINGULAIR [Suspect]
     Indication: ASTHMA
     Route: 048
     Dates: start: 20041101, end: 20060601
  3. LEVOTHYROXINE SODIUM [Concomitant]
     Indication: HYPERTHYROIDISM
     Route: 048
     Dates: start: 19991007
  4. QUINAPRIL HYDROCHLORIDE [Concomitant]
     Indication: HYPERTENSION
     Route: 048
     Dates: start: 20040914, end: 20050901
  5. QUINAPRIL HYDROCHLORIDE [Concomitant]
     Route: 048
     Dates: start: 20050901
  6. TICLOPIDINE HYDROCHLORIDE [Concomitant]
     Indication: HYPERTENSION
     Route: 048
     Dates: start: 20040914
  7. AMLODIPINE BESYLATE [Concomitant]
     Indication: MYOCARDIAL ISCHAEMIA
     Route: 048
     Dates: start: 20040914, end: 20050901
  8. AMLODIPINE BESYLATE [Concomitant]
     Route: 048
     Dates: start: 20050901
  9. AMLODIPINE BESYLATE [Concomitant]
     Indication: HYPERTENSION
     Route: 048
     Dates: start: 20040914, end: 20050901
  10. AMLODIPINE BESYLATE [Concomitant]
     Route: 048
     Dates: start: 20050901
  11. RANITIDINE [Concomitant]
     Route: 048
     Dates: start: 20040914
  12. SIMVASTATIN [Concomitant]
     Route: 048
     Dates: start: 20040914, end: 20051214
  13. SIMVASTATIN [Concomitant]
     Route: 048
     Dates: start: 20060101
  14. NICERGOLINE [Concomitant]
     Route: 048
     Dates: start: 20050516, end: 20050901
  15. PERAZINE DIMALONATE [Concomitant]
     Indication: CEREBRAL ISCHAEMIA
     Route: 048
     Dates: start: 20050101
  16. ASPIRIN [Concomitant]
     Indication: MYOCARDIAL ISCHAEMIA
     Route: 048
     Dates: start: 20051214
  17. ASPIRIN [Concomitant]
     Indication: CORONARY ARTERY DISEASE
     Route: 048
     Dates: start: 20051214
  18. IMIPRAMINE HYDROCHLORIDE [Concomitant]
     Route: 048
     Dates: start: 20051214, end: 20051219
  19. METOPROLOL [Concomitant]
     Route: 048
     Dates: start: 20051219
  20. ISOSORBIDE DINITRATE [Concomitant]
     Route: 065
     Dates: start: 20051214, end: 20051216
  21. SIMVASTATIN [Concomitant]
     Indication: HYPERCHOLESTEROLAEMIA
     Route: 048
     Dates: start: 20051219
  22. CHLORTHALIDONE [Concomitant]
     Route: 048
     Dates: start: 20060101
  23. PREDNISONE [Concomitant]
     Route: 048
     Dates: start: 20041101
  24. LORATADINE [Concomitant]
     Indication: HYPERSENSITIVITY
     Route: 048
     Dates: start: 20040101
  25. FLUVOXAMINE MALEATE [Concomitant]
     Route: 048
     Dates: start: 20051201
  26. MODAFINIL [Concomitant]
     Route: 048
     Dates: start: 20041101

REACTIONS (34)
  - ABDOMINAL DISTENSION [None]
  - ABDOMINAL PAIN [None]
  - ACUTE CORONARY SYNDROME [None]
  - ANXIETY [None]
  - ARTHRALGIA [None]
  - AUTONOMIC NERVOUS SYSTEM IMBALANCE [None]
  - BACK PAIN [None]
  - BONE PAIN [None]
  - CEREBROVASCULAR DISORDER [None]
  - CHEST PAIN [None]
  - CONJUNCTIVAL HYPERAEMIA [None]
  - COUGH [None]
  - DEPRESSION [None]
  - DIZZINESS [None]
  - DRY MOUTH [None]
  - DYSPNOEA [None]
  - FACE OEDEMA [None]
  - FATIGUE [None]
  - FEELING ABNORMAL [None]
  - GENERALISED OEDEMA [None]
  - HEADACHE [None]
  - HYPERCHOLESTEROLAEMIA [None]
  - HYPOTENSION [None]
  - MOVEMENT DISORDER [None]
  - MUSCLE SPASMS [None]
  - MYALGIA [None]
  - NAUSEA [None]
  - OEDEMA PERIPHERAL [None]
  - PETECHIAE [None]
  - PRURITUS [None]
  - RASH [None]
  - SKIN TIGHTNESS [None]
  - SOMNOLENCE [None]
  - SYNCOPE [None]
